FAERS Safety Report 8770091 (Version 2)
Quarter: 2012Q4

REPORT INFORMATION
  Report Type: 
  Country: US (occurrence: US)
  Receive Date: 20120905
  Receipt Date: 20121213
  Transmission Date: 20130627
  Serious: Yes (Hospitalization, Other)
  Sender: FDA-Public Use
  Company Number: US-PFIZER INC-2012217430

PATIENT
  Age: 32 Year
  Sex: Female

DRUGS (2)
  1. CHANTIX [Suspect]
     Indication: SMOKING CESSATION THERAPY
     Dosage: 1 mg, UNK
     Dates: start: 20090709, end: 20110814
  2. BABY ASPIRIN [Concomitant]
     Indication: CARDIAC DISORDER PROPHYLAXIS
     Dosage: UNK
     Dates: start: 2000

REACTIONS (6)
  - Loss of consciousness [Unknown]
  - Depression [Not Recovered/Not Resolved]
  - Anxiety [Not Recovered/Not Resolved]
  - Aggression [Unknown]
  - Fall [Unknown]
  - Nerve injury [Not Recovered/Not Resolved]
